FAERS Safety Report 4459123-3 (Version None)
Quarter: 2004Q3

REPORT INFORMATION
  Report Type: 
  Country: None (occurrence: None)
  Receive Date: 20040920
  Receipt Date: 20040920
  Transmission Date: 20050211
  Serious: Yes (Hospitalization)
  Sender: FDA-Public Use
  Company Number: None

PATIENT
  Age: 41 Year
  Sex: Male

DRUGS (3)
  1. ASPIRIN [Suspect]
     Indication: ANALGESIC EFFECT
     Dosage: PO
     Route: 048
  2. PEPTO BISMOL [Suspect]
     Indication: NAUSEA
     Dosage: PO
     Route: 048
  3. PEPTO BISMOL [Suspect]
     Indication: VOMITING
     Dosage: PO
     Route: 048

REACTIONS (1)
  - ASTHMA [None]
